FAERS Safety Report 5766839-5 (Version None)
Quarter: 2008Q2

REPORT INFORMATION
  Report Type: 
  Country: None (occurrence: None)
  Receive Date: 20080609
  Receipt Date: 20080524
  Transmission Date: 20081010
  Serious: Yes (Hospitalization)
  Sender: FDA-Public Use
  Company Number: 234935J08USA

PATIENT
  Age: 39 Year
  Sex: Female

DRUGS (1)
  1. REBIF [Suspect]
     Indication: MULTIPLE SCLEROSIS
     Dosage: 44 MCG, 3 IN 1 WEEKS; SUBCUTANEOUS
     Route: 058
     Dates: start: 20050429, end: 20080301

REACTIONS (5)
  - FALL [None]
  - FIBULA FRACTURE [None]
  - LIGAMENT RUPTURE [None]
  - MULTIPLE FRACTURES [None]
  - MUSCLE SPASMS [None]
